APPROVED DRUG PRODUCT: MEMANTINE HYDROCHLORIDE
Active Ingredient: MEMANTINE HYDROCHLORIDE
Strength: 5MG
Dosage Form/Route: TABLET;ORAL
Application: A209527 | Product #001 | TE Code: AB
Applicant: SOMERSET THERAPEUTICS LLC
Approved: May 7, 2018 | RLD: No | RS: No | Type: RX